FAERS Safety Report 9414185 (Version 2)
Quarter: 2014Q2

REPORT INFORMATION
  Report Type: Spontaneous
  Country: PT (occurrence: PT)
  Receive Date: 20130723
  Receipt Date: 20140512
  Transmission Date: 20141212
  Serious: Yes (Other)
  Sender: FDA-Public Use
  Company Number: PT-ROCHE-1251026

PATIENT
  Age: 24 Year
  Sex: Female

DRUGS (7)
  1. XOLAIR [Suspect]
     Indication: ASTHMA
     Route: 058
     Dates: start: 20081031
  2. XOLAIR [Suspect]
     Route: 058
     Dates: start: 20120821, end: 20120821
  3. XOLAIR [Suspect]
     Dosage: (AMPOULE FOR INJECTION)
     Route: 065
  4. DEFLAZACORT [Concomitant]
     Route: 065
     Dates: start: 2007
  5. SINGULAIR [Concomitant]
     Route: 065
     Dates: start: 2007
  6. VENTOLIN [Concomitant]
  7. MAIZAR DISKUS [Concomitant]

REACTIONS (5)
  - Prolonged rupture of membranes [Unknown]
  - Pelvic pain [Unknown]
  - Vomiting [Unknown]
  - Exposure during pregnancy [Unknown]
  - Normal newborn [Unknown]
